FAERS Safety Report 12393563 (Version 1)
Quarter: 2016Q2

REPORT INFORMATION
  Report Type: Report from Study
  Country: FR (occurrence: FR)
  Receive Date: 20160523
  Receipt Date: 20160523
  Transmission Date: 20160815
  Serious: Yes (Other)
  Sender: FDA-Public Use
  Company Number: FR-ROCHE-1759735

PATIENT
  Age: 54 Year
  Sex: Male

DRUGS (10)
  1. RANIBIZUMAB [Suspect]
     Active Substance: RANIBIZUMAB
     Dosage: 0.5 MG, UNK (LEFT EYE)
     Route: 031
     Dates: start: 20140626
  2. RANIBIZUMAB [Suspect]
     Active Substance: RANIBIZUMAB
     Dosage: 0.5 MG, UNK (LEFT EYE)
     Route: 031
     Dates: start: 20150411
  3. OZURDEX [Suspect]
     Active Substance: DEXAMETHASONE
     Indication: DIABETIC RETINAL OEDEMA
     Route: 065
     Dates: start: 20150924
  4. RANIBIZUMAB [Suspect]
     Active Substance: RANIBIZUMAB
     Dosage: 0.5 MG, UNK (LEFT EYE)
     Route: 031
     Dates: start: 20150730
  5. RANIBIZUMAB [Suspect]
     Active Substance: RANIBIZUMAB
     Dosage: 0.5 MG, UNK (LEFT EYE)
     Route: 031
     Dates: start: 20150731
  6. RANIBIZUMAB [Suspect]
     Active Substance: RANIBIZUMAB
     Dosage: 0.5 MG, UNK (LEFT EYE)
     Route: 031
     Dates: start: 20140908
  7. RANIBIZUMAB [Suspect]
     Active Substance: RANIBIZUMAB
     Dosage: 0.5 MG, UNK (LEFT EYE)
     Route: 031
     Dates: start: 20150917
  8. RANIBIZUMAB [Suspect]
     Active Substance: RANIBIZUMAB
     Indication: DIABETIC RETINAL OEDEMA
     Dosage: 0.5 MG, UNK (LEFT EYE)
     Route: 031
     Dates: start: 20140417
  9. RANIBIZUMAB [Suspect]
     Active Substance: RANIBIZUMAB
     Dosage: 0.5 MG, UNK (LEFT EYE)
     Route: 031
     Dates: start: 20140522
  10. RANIBIZUMAB [Suspect]
     Active Substance: RANIBIZUMAB
     Dosage: 0.5 MG, UNK (LEFT EYE)
     Route: 031
     Dates: start: 20141009

REACTIONS (12)
  - Arthritis [Not Recovered/Not Resolved]
  - Neck pain [Not Recovered/Not Resolved]
  - Sleep disorder [Not Recovered/Not Resolved]
  - Spondylitis [Not Recovered/Not Resolved]
  - Trigger finger [Not Recovered/Not Resolved]
  - Sinusitis [Recovered/Resolved]
  - Migraine [Not Recovered/Not Resolved]
  - Fibromyalgia [Not Recovered/Not Resolved]
  - Periarthritis [Not Recovered/Not Resolved]
  - Eye pain [Not Recovered/Not Resolved]
  - Drug ineffective [Unknown]
  - Ocular hypertension [Recovered/Resolved]

NARRATIVE: CASE EVENT DATE: 201410
